FAERS Safety Report 24042218 (Version 1)
Quarter: 2024Q3

REPORT INFORMATION
  Report Type: Spontaneous
  Country: US (occurrence: US)
  Receive Date: 20240702
  Receipt Date: 20240702
  Transmission Date: 20241016
  Serious: Yes (Hospitalization)
  Sender: Solventum
  Company Number: US-3M-2024-US-035937

PATIENT
  Sex: Male

DRUGS (1)
  1. CLINPRO 5000 [Suspect]
     Active Substance: SODIUM FLUORIDE
     Indication: Dental disorder prophylaxis
     Route: 048

REACTIONS (5)
  - Dysphagia [Unknown]
  - Throat irritation [Unknown]
  - Escherichia infection [Unknown]
  - Klebsiella infection [Unknown]
  - Pulmonary pain [Unknown]

NARRATIVE: CASE EVENT DATE: 20240619
